FAERS Safety Report 8413531-4 (Version None)
Quarter: 2012Q2

REPORT INFORMATION
  Report Type: 
  Country: None (occurrence: None)
  Receive Date: 20120605
  Receipt Date: 20120530
  Transmission Date: 20120825
  Serious: Yes (Congenital Anomaly)
  Sender: FDA-Public Use
  Company Number: US-GLAXOSMITHKLINE-A0979890A

PATIENT
  Sex: Male

DRUGS (5)
  1. AMOXICILLIN [Concomitant]
  2. PAXIL [Suspect]
     Indication: PRODUCT USED FOR UNKNOWN INDICATION
     Route: 064
  3. MULTI-VITAMINS [Concomitant]
  4. SYNTHROID [Concomitant]
  5. REGLAN [Concomitant]

REACTIONS (4)
  - FOETAL MACROSOMIA [None]
  - SINUS TACHYCARDIA [None]
  - LEFT VENTRICLE OUTFLOW TRACT OBSTRUCTION [None]
  - FOETAL EXPOSURE DURING PREGNANCY [None]
